FAERS Safety Report 9202057 (Version 1)
Quarter: 2013Q2

REPORT INFORMATION
  Report Type: Spontaneous
  Country: DE (occurrence: DE)
  Receive Date: 20130401
  Receipt Date: 20130401
  Transmission Date: 20140414
  Serious: Yes (Congenital Anomaly)
  Sender: FDA-Public Use
  Company Number: DE-MUTUAL PHARMACEUTICAL COMPANY, INC.-ALLP20130047

PATIENT
  Sex: Male

DRUGS (1)
  1. ALLOPURINOL [Suspect]
     Indication: FOETAL EXPOSURE DURING PREGNANCY
     Route: 064

REACTIONS (7)
  - Microphthalmos [None]
  - Cleft lip and palate [None]
  - Renal hypoplasia [None]
  - Low set ears [None]
  - Hypoacusis [None]
  - Cryptorchism [None]
  - Micropenis [None]
